FAERS Safety Report 6043727-0 (Version None)
Quarter: 2009Q1

REPORT INFORMATION
  Report Type: 
  Country: None (occurrence: None)
  Receive Date: 20090120
  Receipt Date: 20090109
  Transmission Date: 20090719
  Serious: Yes (Other)
  Sender: FDA-Public Use
  Company Number: PHEH2009US00666

PATIENT
  Age: 75 Year
  Sex: Female
  Weight: 71.202 kg

DRUGS (1)
  1. RECLAST [Suspect]
     Dosage: 5 MG, UNK
     Dates: start: 20081201

REACTIONS (5)
  - ANAEMIA [None]
  - COUGH [None]
  - GASTROINTESTINAL HAEMORRHAGE [None]
  - MALLORY-WEISS SYNDROME [None]
  - RESPIRATORY TRACT INFECTION [None]
